FAERS Safety Report 12073771 (Version 1)
Quarter: 2016Q1

REPORT INFORMATION
  Report Type: Spontaneous
  Country: JP (occurrence: JP)
  Receive Date: 20160212
  Receipt Date: 20160212
  Transmission Date: 20160526
  Serious: Yes (Hospitalization)
  Sender: FDA-Public Use
  Company Number: JP-IMPAX LABORATORIES, INC-2016-IPXL-00160

PATIENT
  Age: 70 Year
  Sex: Female

DRUGS (3)
  1. PRAMIPEXOLE. [Suspect]
     Active Substance: PRAMIPEXOLE
     Indication: PARKINSON^S DISEASE
     Dosage: 3 MG, DAILY
     Route: 065
  2. CARBIDOPA-LEVODOPA ER [Suspect]
     Active Substance: CARBIDOPA\LEVODOPA
     Indication: PARKINSON^S DISEASE
     Dosage: 600 MG, DAILY
     Route: 065
  3. SELEGILINE [Suspect]
     Active Substance: SELEGILINE
     Indication: PARKINSON^S DISEASE
     Dosage: 5 MG, DAILY
     Route: 065

REACTIONS (4)
  - Parkinsonism hyperpyrexia syndrome [Recovered/Resolved]
  - Gait disturbance [Recovered/Resolved]
  - Hallucination, visual [Recovered/Resolved]
  - Parkinson^s disease [Recovered/Resolved]
